FAERS Safety Report 7908632-0 (Version None)
Quarter: 2011Q4

REPORT INFORMATION
  Report Type: 
  Country: None (occurrence: None)
  Receive Date: 20111111
  Receipt Date: 20111108
  Transmission Date: 20120403
  Serious: Yes (Death, Other)
  Sender: FDA-Public Use
  Company Number: PHHY2011JP25744

PATIENT
  Sex: Male
  Weight: 55 kg

DRUGS (11)
  1. NORVASC [Concomitant]
     Dosage: 5 MG, UNK
     Route: 048
     Dates: start: 20080526, end: 20100405
  2. TICLOPIDINE HCL [Concomitant]
     Dosage: 100 MG, UNK
     Route: 048
     Dates: start: 20080526, end: 20100405
  3. ALLORINE [Concomitant]
     Dosage: 100 MG, UNK
     Route: 048
     Dates: start: 20080526, end: 20100405
  4. CISDYNE [Concomitant]
     Dosage: 750 MG, UNK
     Route: 048
     Dates: start: 20080526, end: 20090405
  5. BASEN [Concomitant]
     Dosage: 0.6 MG, UNK
     Route: 048
     Dates: start: 20080526, end: 20090401
  6. DIGOXIN [Concomitant]
     Dosage: 01125 MG, UNK
     Route: 048
     Dates: start: 20080526, end: 20100405
  7. FERROUS CITRATE [Concomitant]
     Dosage: 100 MG, UNK
     Route: 048
     Dates: start: 20080526, end: 20081020
  8. AMARYL [Concomitant]
     Dosage: 2 MG, UNK
     Route: 048
     Dates: start: 20080526, end: 20090401
  9. SELBEX [Concomitant]
     Dosage: 50 MG, UNK
     Route: 048
     Dates: start: 20080526, end: 20100405
  10. VALSARTAN [Suspect]
     Indication: HYPERTENSION
     Dosage: 80 MG, QD
     Route: 048
     Dates: start: 20090119, end: 20100405
  11. RABEPRAZOLE SODIUM [Concomitant]
     Dosage: 10 MG, UNK
     Route: 048
     Dates: start: 20090401, end: 20090405

REACTIONS (2)
  - BLOOD PRESSURE DIASTOLIC DECREASED [None]
  - DEATH [None]
